FAERS Safety Report 5733240-X (Version None)
Quarter: 2008Q2

REPORT INFORMATION
  Report Type: 
  Country: None (occurrence: None)
  Receive Date: 20080509
  Receipt Date: 20080505
  Transmission Date: 20081010
  Serious: Yes (Life-Threatening, Hospitalization, Disabling)
  Sender: FDA-Public Use
  Company Number: PHEH2008US02339

PATIENT
  Age: 86 Year
  Sex: Female

DRUGS (17)
  1. RECLAST [Suspect]
     Indication: OSTEOPOROSIS
     Dosage: 5 MG, ONCE/SINGLE
     Dates: start: 20080125
  2. LEVOTHYROXINE SODIUM [Concomitant]
     Dosage: 500 MG, QD
     Dates: start: 20070320
  3. CALTRATE [Concomitant]
     Dosage: 600 MG, UNK
     Dates: start: 20070320
  4. THERAPEUTIC-M [Concomitant]
     Dosage: UNK, QD
     Dates: start: 20070426
  5. GINKGO BILOBA [Concomitant]
     Dosage: UNK, QD
     Dates: start: 20070320
  6. COD-LIVER OIL [Concomitant]
     Dates: start: 20070320
  7. OMEPRAZOLE [Concomitant]
     Dosage: 20 MG, QD
     Dates: start: 20070119
  8. METHOTREXATE [Concomitant]
     Dosage: 7.5 MG, QW
     Dates: start: 20070426
  9. METHOTREXATE [Concomitant]
     Dosage: 12.5 MG, QW
     Dates: start: 20070607
  10. FOLIC ACID [Concomitant]
     Dosage: 1 MG, QD
     Dates: start: 20070426
  11. FOLIC ACID [Concomitant]
     Dosage: 1 MG, EVERY 5 DAYS
     Dates: start: 20070607
  12. EVOXAC [Concomitant]
     Dosage: UNK, TID
     Dates: start: 20070607
  13. EVOXAC [Concomitant]
     Dosage: UNK, BID
     Dates: start: 20070816
  14. VITAMIN B-12 [Concomitant]
     Dosage: 1000 U, QD
     Dates: start: 20070607
  15. VITAMIN D [Concomitant]
     Dosage: 1000 U, QD
     Dates: start: 20070607
  16. GABAPENTIN [Concomitant]
     Dosage: 200 MG, QHS
     Dates: start: 20080125
  17. SALT TABLETS [Concomitant]
     Dosage: 1 G, BID
     Dates: start: 20080125

REACTIONS (4)
  - ATRIAL FIBRILLATION [None]
  - INTERNATIONAL NORMALISED RATIO DECREASED [None]
  - ISCHAEMIC CEREBRAL INFARCTION [None]
  - TRANSIENT ISCHAEMIC ATTACK [None]
